FAERS Safety Report 9494394 (Version 2)
Quarter: 2013Q3

REPORT INFORMATION
  Report Type: Report from Study
  Country: FR (occurrence: FR)
  Receive Date: 20130903
  Receipt Date: 20130925
  Transmission Date: 20140515
  Serious: Yes (Hospitalization)
  Sender: FDA-Public Use
  Company Number: FR-009507513-1308FRA013482

PATIENT
  Age: 53 Year
  Sex: Male

DRUGS (10)
  1. MK-0000 [Suspect]
     Indication: CHRONIC HEPATITIS C
     Dosage: 1200 MG, UNKNOWN
     Route: 048
     Dates: start: 20130502
  2. COPEGUS [Suspect]
     Indication: CHRONIC HEPATITIS C
     Dosage: 1200 MG, UNKNOWN
     Route: 048
     Dates: start: 20130502
  3. PEGINTERFERON ALFA-2A [Suspect]
     Indication: CHRONIC HEPATITIS C
     Dosage: 180 MICROGRAM, QW
     Dates: start: 20130502
  4. ASUNAPREVIR [Suspect]
     Indication: CHRONIC HEPATITIS C
     Dosage: 1200 MG, UNKNOWN
     Dates: start: 20130531
  5. DACLATASVIR [Suspect]
     Indication: CHRONIC HEPATITIS C
     Dosage: 60 MG, UNK
     Dates: start: 20130531
  6. ISENTRESS [Concomitant]
     Dosage: UNK
     Dates: start: 20121106
  7. LANTUS [Concomitant]
  8. CARDENSIEL [Concomitant]
  9. TRUVADA [Concomitant]
     Dosage: UNK
     Dates: start: 20060705
  10. LEXOMIL [Concomitant]

REACTIONS (1)
  - Asthenia [Not Recovered/Not Resolved]
